FAERS Safety Report 16427352 (Version 1)
Quarter: 2019Q2

REPORT INFORMATION
  Report Type: Spontaneous
  Country: NL (occurrence: NL)
  Receive Date: 20190613
  Receipt Date: 20190613
  Transmission Date: 20190711
  Serious: Yes (Other)
  Sender: FDA-Public Use
  Company Number: NL-PFIZER INC-WYENL-WYE-H06801308

PATIENT
  Age: 61 Year
  Sex: Female

DRUGS (3)
  1. CICLOSPORIN [Interacting]
     Active Substance: CYCLOSPORINE
     Indication: PROPHYLAXIS AGAINST TRANSPLANT REJECTION
     Dosage: 120 MG, DAILY
  2. CICLOSPORIN [Interacting]
     Active Substance: CYCLOSPORINE
     Dosage: 60 MG, DAILY
  3. TYGACIL [Suspect]
     Active Substance: TIGECYCLINE
     Indication: ESCHERICHIA URINARY TRACT INFECTION
     Dosage: UNK
     Route: 042

REACTIONS (3)
  - Drug interaction [Recovered/Resolved]
  - Blood creatinine increased [Recovered/Resolved]
  - Immunosuppressant drug level increased [Recovered/Resolved]
